FAERS Safety Report 24913004 (Version 1)
Quarter: 2025Q1

REPORT INFORMATION
  Report Type: Spontaneous
  Country: FR (occurrence: FR)
  Receive Date: 20250201
  Receipt Date: 20250201
  Transmission Date: 20250408
  Serious: Yes (Death)
  Sender: ABBVIE
  Company Number: FR-ABBVIE-6113401

PATIENT
  Age: 78 Year
  Sex: Female

DRUGS (2)
  1. FOSCARBIDOPA\FOSLEVODOPA [Suspect]
     Active Substance: FOSCARBIDOPA\FOSLEVODOPA
     Indication: Product used for unknown indication
     Route: 058
     Dates: start: 20241129
  2. APOMORPHINE [Suspect]
     Active Substance: APOMORPHINE
     Indication: Product used for unknown indication
     Route: 058
     Dates: start: 20241120

REACTIONS (3)
  - Cardiac arrest [Fatal]
  - Freezing phenomenon [Unknown]
  - Somnolence [Unknown]

NARRATIVE: CASE EVENT DATE: 20250104
